FAERS Safety Report 14131185 (Version 1)
Quarter: 2017Q4

REPORT INFORMATION
  Report Type: Spontaneous
  Country: FR (occurrence: FR)
  Receive Date: 20171026
  Receipt Date: 20171026
  Transmission Date: 20180321
  Serious: Yes (Other)
  Sender: FDA-Public Use
  Company Number: FR-MERCK KGAA-2031627

PATIENT
  Age: 49 Year
  Sex: Female

DRUGS (1)
  1. NOVOTHYROX [Suspect]
     Active Substance: LEVOTHYROXINE SODIUM
     Indication: HYPOTHYROIDISM
     Route: 048
     Dates: start: 20170413

REACTIONS (12)
  - Tendonitis [Unknown]
  - Insomnia [Unknown]
  - Nausea [Unknown]
  - Migraine [Unknown]
  - Muscle spasms [Unknown]
  - Gastrointestinal disorder [Unknown]
  - Myalgia [Unknown]
  - Vision blurred [Unknown]
  - Alopecia [Unknown]
  - Malaise [Unknown]
  - Irritability [Unknown]
  - Blood thyroid stimulating hormone increased [Unknown]

NARRATIVE: CASE EVENT DATE: 201705
